FAERS Safety Report 9037257 (Version 2)
Quarter: 2013Q1

REPORT INFORMATION
  Report Type: Spontaneous
  Country: US (occurrence: US)
  Receive Date: 20130129
  Receipt Date: 20130306
  Transmission Date: 20140127
  Serious: Yes (Hospitalization)
  Sender: FDA-Public Use
  Company Number: US-BIOGENIDEC-2013BI007991

PATIENT
  Age: 38 Year
  Sex: Female

DRUGS (7)
  1. TYSABRI [Suspect]
     Indication: MULTIPLE SCLEROSIS
     Route: 042
     Dates: start: 20060907
  2. COUMADIN [Concomitant]
     Indication: PULMONARY EMBOLISM
  3. INSULIN [Concomitant]
  4. DULOXETINE [Concomitant]
  5. ZOLPIDEM [Concomitant]
  6. TYLENOL WITH HYDROCODONE [Concomitant]
  7. PANTOPRAZOLE [Concomitant]

REACTIONS (7)
  - Pancreatitis [Recovered/Resolved]
  - Pulmonary embolism [Recovered/Resolved]
  - Dyslipidaemia [Not Recovered/Not Resolved]
  - Multiple sclerosis relapse [Recovered/Resolved]
  - Ventricular tachycardia [Recovered/Resolved]
  - Nausea [Unknown]
  - Vomiting [Unknown]
